FAERS Safety Report 5693739-1 (Version None)
Quarter: 2008Q2

REPORT INFORMATION
  Report Type: 
  Country: None (occurrence: None)
  Receive Date: 20080403
  Receipt Date: 20080401
  Transmission Date: 20081010
  Serious: Yes (Other)
  Sender: FDA-Public Use
  Company Number: US-ALLERGAN-0803830US

PATIENT
  Sex: Female

DRUGS (1)
  1. BOTOX COSMETIC [Suspect]
     Indication: SKIN WRINKLING
     Dosage: UNK, SINGLE
     Route: 030
     Dates: start: 20080301, end: 20080301

REACTIONS (5)
  - ACNE [None]
  - ANGINA PECTORIS [None]
  - DYSPNOEA [None]
  - SPEECH DISORDER [None]
  - SWELLING FACE [None]
